FAERS Safety Report 8550696-8 (Version None)
Quarter: 2012Q3

REPORT INFORMATION
  Report Type: 
  Country: None (occurrence: None)
  Receive Date: 20120730
  Receipt Date: 20120726
  Transmission Date: 20120928
  Serious: Yes (Other)
  Sender: FDA-Public Use
  Company Number: US-GLAXOSMITHKLINE-A0987199A

PATIENT
  Age: 31 Year
  Sex: Female

DRUGS (3)
  1. ADVAIR DISKUS 100/50 [Suspect]
     Indication: ASTHMA
     Dosage: 1PUFF PER DAY
     Route: 055
     Dates: start: 20060101
  2. ALBUTEROL [Concomitant]
  3. ALBUTEROL [Concomitant]

REACTIONS (2)
  - PRODUCT QUALITY ISSUE [None]
  - CHOKING [None]
